FAERS Safety Report 9663736 (Version 1)
Quarter: 2013Q4

REPORT INFORMATION
  Report Type: Spontaneous
  Country: CH (occurrence: CH)
  Receive Date: 20131101
  Receipt Date: 20131101
  Transmission Date: 20140711
  Serious: Yes (Other)
  Sender: FDA-Public Use
  Company Number: PHHY2013CH121756

PATIENT
  Age: 64 Year
  Sex: Male

DRUGS (4)
  1. ONBREZ [Suspect]
     Indication: CHRONIC OBSTRUCTIVE PULMONARY DISEASE
     Dosage: 150 UG, QD
     Dates: start: 20130301, end: 20130304
  2. SPIRIVA [Concomitant]
     Dosage: 1 DF, QD
     Dates: start: 201211
  3. PANTOPRAZOL [Concomitant]
  4. PRAVASTATIN [Concomitant]

REACTIONS (2)
  - Pleurisy [Recovered/Resolved]
  - Pain [Recovered/Resolved]
